FAERS Safety Report 7586694-0 (Version None)
Quarter: 2011Q3

REPORT INFORMATION
  Report Type: 
  Country: None (occurrence: None)
  Receive Date: 20110701
  Receipt Date: 20110617
  Transmission Date: 20111222
  Serious: Yes (Hospitalization)
  Sender: FDA-Public Use
  Company Number: CH-BAYER-2011-051915

PATIENT
  Age: 78 Year
  Sex: Male

DRUGS (5)
  1. IRBESARTAN [Concomitant]
     Dosage: 300 MG, QD
     Route: 048
  2. ASPIRIN [Suspect]
     Dosage: 100 MG, QD
     Route: 048
     Dates: end: 20110513
  3. TOBRADEX [Concomitant]
     Dosage: 1 GTT, TID
     Route: 031
  4. SIMCORA [Concomitant]
     Dosage: 20 MG, QD
     Route: 048
  5. METFORMIN HCL [Concomitant]
     Dosage: 850 MG, QD
     Route: 048

REACTIONS (2)
  - HEMIPARESIS [None]
  - HAEMORRHAGE INTRACRANIAL [None]
